FAERS Safety Report 11293783 (Version 1)
Quarter: 2015Q3

REPORT INFORMATION
  Report Type: Spontaneous
  Country: US (occurrence: US)
  Receive Date: 20150722
  Receipt Date: 20150722
  Transmission Date: 20151125
  Serious: No
  Sender: FDA-Public Use
  Company Number: US-AMGEN-USASP2015052230

PATIENT
  Age: 47 Year
  Sex: Male

DRUGS (1)
  1. CORLANOR [Suspect]
     Active Substance: IVABRADINE HYDROCHLORIDE
     Indication: AUTONOMIC NEUROPATHY
     Dosage: 5 MG, BID
     Route: 065

REACTIONS (1)
  - Off label use [Unknown]
